FAERS Safety Report 19403529 (Version 6)
Quarter: 2021Q4

REPORT INFORMATION
  Report Type: Report from Study
  Country: US (occurrence: None)
  Receive Date: 20210610
  Receipt Date: 20211102
  Transmission Date: 20220303
  Serious: Yes (Life-Threatening, Hospitalization, Other)
  Sender: FDA-Public Use
  Company Number: US-MERCK HEALTHCARE KGAA-9242983

PATIENT
  Age: 64 Year
  Sex: Female

DRUGS (2)
  1. REBIF [Suspect]
     Active Substance: INTERFERON BETA-1A
     Indication: Multiple sclerosis
     Dosage: PREVIOUSLY REBIJECT II AND REBIF PREFILLED SYRINGE
     Route: 058
     Dates: start: 20200424, end: 202105
  2. REBIF [Suspect]
     Active Substance: INTERFERON BETA-1A
     Dosage: PREVIOUSLY REBIJECT II AND REBIF PREFILLED SYRINGE
     Route: 058
     Dates: start: 20210715, end: 20211020

REACTIONS (8)
  - Unresponsive to stimuli [Unknown]
  - Diarrhoea [Unknown]
  - Hallucination [Unknown]
  - Blood magnesium decreased [Unknown]
  - Vitamin D decreased [Unknown]
  - White blood cell count increased [Unknown]
  - Aggression [Unknown]
  - Asthenia [Unknown]

NARRATIVE: CASE EVENT DATE: 20210101
